FAERS Safety Report 17882528 (Version 2)
Quarter: 2020Q2

REPORT INFORMATION
  Report Type: Report from Study
  Country: AR (occurrence: AR)
  Receive Date: 20200610
  Receipt Date: 20200617
  Transmission Date: 20200714
  Serious: Yes (Hospitalization, Other)
  Sender: FDA-Public Use
  Company Number: AR-SEATTLE GENETICS-2020SGN02508

PATIENT
  Age: 35 Year
  Sex: Female

DRUGS (1)
  1. BRENTUXIMAB VEDOTIN [Suspect]
     Active Substance: BRENTUXIMAB VEDOTIN
     Indication: HODGKIN^S DISEASE
     Dosage: 50 MILLIGRAM
     Route: 042
     Dates: start: 201909

REACTIONS (8)
  - Anaemia [Not Recovered/Not Resolved]
  - Chronic obstructive pulmonary disease [Unknown]
  - Dehydration [Unknown]
  - Pneumonia [Unknown]
  - Abdominal pain [Unknown]
  - Blood potassium decreased [Unknown]
  - Respiratory disorder [Unknown]
  - Fluid retention [Unknown]

NARRATIVE: CASE EVENT DATE: 2000
